FAERS Safety Report 10643364 (Version 1)
Quarter: 2014Q4

REPORT INFORMATION
  Report Type: Spontaneous
  Country: US (occurrence: None)
  Receive Date: 20141128
  Receipt Date: 20141128
  Transmission Date: 20150529
  Serious: Yes (Other)
  Sender: FDA-Public Use
  Company Number: PHEH2014US018827

PATIENT
  Age: 65 Year
  Sex: Female
  Weight: 87.5 kg

DRUGS (14)
  1. ALEVE [Suspect]
     Active Substance: NAPROXEN SODIUM
     Indication: FIBROMYALGIA
  2. NAPROXEN. [Suspect]
     Active Substance: NAPROXEN
     Indication: OSTEOARTHRITIS
  3. RELAFEN [Suspect]
     Active Substance: NABUMETONE
     Indication: FIBROMYALGIA
  4. RELAFEN [Suspect]
     Active Substance: NABUMETONE
     Indication: RHEUMATOID ARTHRITIS
  5. RELAFEN [Suspect]
     Active Substance: NABUMETONE
     Indication: OSTEOARTHRITIS
  6. MELOXICAM (MELOXICAM) [Suspect]
     Active Substance: MELOXICAM
     Indication: RHEUMATOID ARTHRITIS
  7. MELOXICAM (MELOXICAM) [Suspect]
     Active Substance: MELOXICAM
     Indication: FIBROMYALGIA
  8. VOLTAREN [Suspect]
     Active Substance: DICLOFENAC SODIUM
     Indication: OSTEOARTHRITIS
  9. VOLTAREN [Suspect]
     Active Substance: DICLOFENAC SODIUM
     Indication: FIBROMYALGIA
  10. NAPROXEN. [Suspect]
     Active Substance: NAPROXEN
     Indication: RHEUMATOID ARTHRITIS
  11. NAPROXEN. [Suspect]
     Active Substance: NAPROXEN
     Indication: FIBROMYALGIA
  12. MELOXICAM (MELOXICAM) [Suspect]
     Active Substance: MELOXICAM
     Indication: OSTEOARTHRITIS
  13. ALEVE [Suspect]
     Active Substance: NAPROXEN SODIUM
     Indication: RHEUMATOID ARTHRITIS
  14. VOLTAREN [Suspect]
     Active Substance: DICLOFENAC SODIUM
     Indication: RHEUMATOID ARTHRITIS

REACTIONS (5)
  - Rash [None]
  - Haematochezia [None]
  - Hypersensitivity [None]
  - Blister [None]
  - Dermatitis [None]
